FAERS Safety Report 5705588-6 (Version None)
Quarter: 2008Q2

REPORT INFORMATION
  Report Type: 
  Country: None (occurrence: None)
  Receive Date: 20080415
  Receipt Date: 20080407
  Transmission Date: 20081010
  Serious: Yes (Hospitalization)
  Sender: FDA-Public Use
  Company Number: FR-ABBOTT-08P-056-0446116-00

PATIENT
  Age: 49 Year
  Sex: Female

DRUGS (2)
  1. ZECLAR [Suspect]
     Indication: BRONCHITIS
     Route: 048
     Dates: start: 20080101, end: 20080111
  2. THALIDOMIDE [Suspect]
     Indication: ECZEMA
     Route: 048
     Dates: start: 20080107, end: 20080111

REACTIONS (7)
  - ASTHENIA [None]
  - BRONCHITIS [None]
  - HYPOCAPNIA [None]
  - HYPOXIA [None]
  - MUCOSAL DISCOLOURATION [None]
  - PRODUCTIVE COUGH [None]
  - PULMONARY EMBOLISM [None]
